FAERS Safety Report 10077206 (Version 2)
Quarter: 2014Q2

REPORT INFORMATION
  Report Type: Spontaneous
  Country: US (occurrence: US)
  Receive Date: 20140414
  Receipt Date: 20140414
  Transmission Date: 20141212
  Serious: No
  Sender: FDA-Public Use
  Company Number: US-BANPHARM-20130894

PATIENT
  Age: 86 Year
  Sex: Female
  Weight: 56.7 kg

DRUGS (5)
  1. ALEVE LIQUID GELS 220MG [Suspect]
     Indication: ARTHRITIS
     Dosage: 2 DF, QD,
     Route: 048
     Dates: start: 2010, end: 20130220
  2. CIMZIA [Concomitant]
  3. LEFLUNOMIDE [Concomitant]
  4. BLOOD PRESSURE MEDICATION [Concomitant]
  5. FERROUS GLUCONATE [Concomitant]

REACTIONS (2)
  - Incorrect drug administration duration [Unknown]
  - Weight decreased [Not Recovered/Not Resolved]
